FAERS Safety Report 6501983-6 (Version None)
Quarter: 2009Q4

REPORT INFORMATION
  Report Type: 
  Country: None (occurrence: None)
  Receive Date: 20091216
  Receipt Date: 20091211
  Transmission Date: 20100525
  Serious: Yes (Hospitalization)
  Sender: FDA-Public Use
  Company Number: JP-B.I. PHARMACEUTICALS,INC./RIDGEFIELD-2009-DE-07725BY

PATIENT
  Sex: Female

DRUGS (32)
  1. MICARDIS [Suspect]
     Indication: HYPERTENSION
     Dosage: 40 MG
     Route: 048
     Dates: start: 20090415, end: 20090517
  2. ASPIRIN [Suspect]
     Indication: ANGINA PECTORIS
     Dosage: 100 MG
     Route: 048
     Dates: start: 20090415
  3. CLOPIDOGREL BISULFATE [Suspect]
     Indication: ANGINA PECTORIS
     Dosage: 300 MG
     Route: 048
     Dates: start: 20090416, end: 20090416
  4. CLOPIDOGREL BISULFATE [Suspect]
     Indication: PERCUTANEOUS CORONARY INTERVENTION
     Dosage: 75 MG
     Route: 048
     Dates: start: 20090417, end: 20090418
  5. AMARYL [Suspect]
     Indication: DIABETES MELLITUS
     Dosage: 1 MG
     Route: 048
     Dates: start: 20090422, end: 20090517
  6. COVERSYL [Suspect]
     Indication: HYPERTENSION
     Dosage: 4 MG
     Route: 048
     Dates: start: 20090416, end: 20090518
  7. ALDACTONE [Suspect]
     Indication: HYPERTENSION
     Dosage: 25 MG
     Route: 048
     Dates: start: 20090417, end: 20090518
  8. RESTOR [Suspect]
     Indication: HYPERCHOLESTEROLAEMIA
     Dosage: 2.5 MG
     Route: 048
     Dates: start: 20090415, end: 20090514
  9. TAKEPRON [Suspect]
     Indication: GASTRITIS PROPHYLAXIS
     Dosage: 15 MG
     Route: 048
     Dates: start: 20090415, end: 20090514
  10. SIGMART [Suspect]
     Indication: HYPERTENSION
     Dosage: 15 MG
     Route: 048
     Dates: start: 20090416, end: 20090518
  11. MIGLITOL [Suspect]
     Indication: DIABETES MELLITUS
     Dosage: 150 MG
     Route: 048
     Dates: start: 20090419, end: 20090517
  12. NORVASC [Suspect]
     Indication: HYPERTENSION
     Dosage: 2.5 MG
     Route: 048
     Dates: start: 19950101, end: 20090418
  13. NORVASC [Suspect]
     Dosage: 10 MG
     Route: 048
     Dates: start: 20090419, end: 20090518
  14. ARTIST [Suspect]
     Indication: HYPERTENSION
     Dosage: 2.5 MG
     Route: 048
     Dates: start: 20090416, end: 20090418
  15. ARTIST [Suspect]
     Dosage: 5 MG
     Route: 048
     Dates: start: 20090419, end: 20090518
  16. ACETYLSALICYLIC ACID [Concomitant]
     Dates: start: 20090415
  17. CARVEDILOL [Concomitant]
     Dates: start: 20090416, end: 20090418
  18. BROTIZOLAM [Concomitant]
     Dates: start: 20090417, end: 20090417
  19. PENTAZOCINE [Concomitant]
     Dates: start: 20090417, end: 20090417
  20. INSULIN HUMAN [Concomitant]
     Dates: start: 20090417, end: 20090418
  21. GLYCERYL TRINITRATE [Concomitant]
     Dates: start: 20090415, end: 20090419
  22. HEPARIN SODIUM [Concomitant]
     Dates: start: 20090415, end: 20090420
  23. HEPARIN SODIUM [Concomitant]
     Dates: start: 20090416, end: 20090416
  24. NITROGLYCERIN [Concomitant]
     Dates: start: 20090415, end: 20090419
  25. NITROGLYCERIN [Concomitant]
     Dates: start: 20090416, end: 20090416
  26. NICORANDIL [Concomitant]
     Dates: start: 20090416, end: 20090518
  27. METOCLOPRAMIDE [Concomitant]
     Dates: start: 20090416, end: 20090416
  28. IOPAMIDOL [Concomitant]
     Dates: start: 20090416, end: 20090416
  29. GLUCOSE [Concomitant]
     Dosage: FORM: INJECTION
     Dates: start: 20090415, end: 20090419
  30. LIDOCAINE HYDROCHLORIDE [Concomitant]
     Dates: start: 20090416, end: 20090416
  31. VEEN-F [Concomitant]
     Dates: start: 20090415, end: 20090420
  32. INVESTIGATIONAL DRUG [Concomitant]
     Dates: end: 20090416

REACTIONS (2)
  - IN-STENT CORONARY ARTERY RESTENOSIS [None]
  - LIVER FUNCTION TEST ABNORMAL [None]
